FAERS Safety Report 23222821 (Version 1)
Quarter: 2023Q4

REPORT INFORMATION
  Report Type: Spontaneous
  Country: US (occurrence: US)
  Receive Date: 20231123
  Receipt Date: 20231123
  Transmission Date: 20240109
  Serious: Yes (Hospitalization, Other)
  Sender: FDA-Public Use
  Company Number: US-BAXTER-2023BAX035968

PATIENT
  Age: 14 Year
  Sex: Female
  Weight: 56.7 kg

DRUGS (11)
  1. INSULIN NOS [Suspect]
     Active Substance: INSULIN NOS
     Indication: Diabetic ketoacidosis
     Route: 041
  2. POTASSIUM CHLORIDE\SODIUM CHLORIDE [Suspect]
     Active Substance: POTASSIUM CHLORIDE\SODIUM CHLORIDE
     Indication: Diabetic ketoacidosis
     Dosage: 3/4 NORMAL SALINE INTRAVENOUS (IV) FLUIDS WITH VARYING POTASSIUM CONTENT VIA A TWO-BAG SYSTEM ADMINI
     Route: 042
  3. DEXTROSE MONOHYDRATE\SODIUM CHLORIDE [Suspect]
     Active Substance: DEXTROSE MONOHYDRATE\SODIUM CHLORIDE
     Indication: Diabetic ketoacidosis
     Dosage: 3/4 NORMAL SALINE INTRAVENOUS (IV) FLUIDS WITH VARYING DEXTROSE VIA A TWO-BAG SYSTEM ADMINISTERED AT
     Route: 042
  4. SODIUM CHLORIDE [Suspect]
     Active Substance: SODIUM CHLORIDE
     Indication: Diabetic ketoacidosis
     Dosage: 1-L NORMAL SALINE FLUID BOLUS
     Route: 040
  5. SODIUM CHLORIDE [Suspect]
     Active Substance: SODIUM CHLORIDE
     Dosage: 3/4 NORMAL SALINE, VIA A TWO-BAG SYSTEM ADMINISTERED AT 1.5 TIMES THE MAINTENANCE RATE
     Route: 042
  6. POTASSIUM ACETATE [Concomitant]
     Active Substance: POTASSIUM ACETATE
     Indication: Hypokalaemia
     Dosage: ONE DOSE OF 16 MEQ
     Route: 042
  7. POTASSIUM ACETATE [Concomitant]
     Active Substance: POTASSIUM ACETATE
     Indication: Supplementation therapy
  8. INSULIN GLARGINE [Concomitant]
     Active Substance: INSULIN GLARGINE
     Indication: Diabetes mellitus
     Dosage: MULTIPLE DAILY INJECTION REGIMEN
     Route: 065
  9. INSULIN LISPRO [Concomitant]
     Active Substance: INSULIN LISPRO
     Indication: Diabetes mellitus
     Dosage: MULTIPLE DAILY INJECTION REGIMEN
     Route: 065
  10. POTASSIUM PHOSPHATE [Concomitant]
     Active Substance: POTASSIUM PHOSPHATE
     Indication: Hypophosphataemia
     Dosage: 17 MMOL
     Route: 042
  11. POTASSIUM PHOSPHATE [Concomitant]
     Active Substance: POTASSIUM PHOSPHATE
     Indication: Supplementation therapy

REACTIONS (11)
  - Oedema [Recovered/Resolved]
  - Periorbital oedema [Recovered/Resolved]
  - Oedema peripheral [Recovered/Resolved]
  - Dyspnoea [Unknown]
  - Orthopnoea [Unknown]
  - Non-cardiac chest pain [Unknown]
  - Abdominal distension [Recovering/Resolving]
  - Abdominal pain [Unknown]
  - Face oedema [Recovered/Resolved]
  - Localised oedema [Recovered/Resolved]
  - Pulmonary oedema [Recovering/Resolving]
